FAERS Safety Report 25017489 (Version 1)
Quarter: 2025Q1

REPORT INFORMATION
  Report Type: Spontaneous
  Country: US (occurrence: US)
  Receive Date: 20250227
  Receipt Date: 20250227
  Transmission Date: 20250409
  Serious: Yes (Other)
  Sender: BRISTOL-MYERS SQUIBB COMPANY
  Company Number: US-BRISTOL-MYERS SQUIBB COMPANY-2025-027026

PATIENT
  Age: 88 Year
  Sex: Male

DRUGS (1)
  1. LENALIDOMIDE [Suspect]
     Active Substance: LENALIDOMIDE
     Indication: Monoclonal gammopathy
     Dosage: FREQUENCY: TAKE 1 CAPSULE (10MG) BY MOUTH EVERY DAY FOR 21 DAYS OUT OF 28 DAY CYCLE
     Route: 048
     Dates: start: 20250218

REACTIONS (5)
  - Groin pain [Unknown]
  - Fatigue [Unknown]
  - Osteopenia [Unknown]
  - Spinal compression fracture [Unknown]
  - Off label use [Unknown]
